FAERS Safety Report 6270733-3 (Version None)
Quarter: 2009Q3

REPORT INFORMATION
  Report Type: 
  Country: None (occurrence: None)
  Receive Date: 20090716
  Receipt Date: 20090707
  Transmission Date: 20100115
  Serious: Yes (Hospitalization, Other)
  Sender: FDA-Public Use
  Company Number: US-JNJFOC-20090608511

PATIENT
  Sex: Male
  Weight: 47.6 kg

DRUGS (8)
  1. REMICADE [Suspect]
     Route: 042
  2. REMICADE [Suspect]
     Indication: CROHN'S DISEASE
     Route: 042
  3. ASPIRIN [Concomitant]
     Route: 048
  4. PREDNISONE TAB [Concomitant]
  5. CIPRO [Concomitant]
  6. OMEPRAZOLE [Concomitant]
  7. PROTONIX [Concomitant]
  8. MERCAPTOPURINE [Concomitant]

REACTIONS (1)
  - CROHN'S DISEASE [None]
